FAERS Safety Report 9455375 (Version 1)
Quarter: 2013Q3

REPORT INFORMATION
  Report Type: Spontaneous
  Country: CH (occurrence: None)
  Receive Date: 20130808
  Receipt Date: 20130808
  Transmission Date: 20140515
  Serious: Yes (Hospitalization)
  Sender: FDA-Public Use
  Company Number: 20130424

PATIENT
  Sex: Female

DRUGS (1)
  1. FERINJECT [Suspect]
     Indication: ANAEMIA
     Route: 041
     Dates: start: 20130701, end: 20130701

REACTIONS (3)
  - Pain in extremity [None]
  - Oedema peripheral [None]
  - Cellulitis [None]
